FAERS Safety Report 13191884 (Version 1)
Quarter: 2017Q1

REPORT INFORMATION
  Report Type: Spontaneous
  Country: US (occurrence: US)
  Receive Date: 20170206
  Receipt Date: 20170206
  Transmission Date: 20170428
  Serious: Yes (Other)
  Sender: FDA-Public Use
  Company Number: None

PATIENT
  Age: 51 Year
  Weight: 58.5 kg

DRUGS (12)
  1. GLUCOSAMINE WITH MSM [Concomitant]
  2. MAGNESIUM WITH PROTEIN [Concomitant]
  3. MVI [Concomitant]
     Active Substance: VITAMINS
  4. CALCIUM WITH MAGNESIUM AND ZINC [Concomitant]
  5. ASPIRIN. [Concomitant]
     Active Substance: ASPIRIN
  6. VITAMIN C [Concomitant]
     Active Substance: ASCORBIC ACID
  7. METRONIDAZOLE 500MG TABLETS [Suspect]
     Active Substance: METRONIDAZOLE
     Indication: BACTERIAL VAGINOSIS
     Dosage: ?          QUANTITY:1 TABLET(S);?
     Route: 048
     Dates: start: 20170129, end: 20170204
  8. LISINOPRIL. [Concomitant]
     Active Substance: LISINOPRIL
  9. LORATADINE. [Concomitant]
     Active Substance: LORATADINE
  10. PROBIOTICS [Concomitant]
     Active Substance: PROBIOTICS NOS
  11. HOMEOPATHIC MIGRAINE HEADACHE [Concomitant]
  12. TUMERIC [Concomitant]
     Active Substance: TURMERIC

REACTIONS (26)
  - Neck pain [None]
  - Peripheral coldness [None]
  - Palpitations [None]
  - Diarrhoea [None]
  - Chromaturia [None]
  - Fatigue [None]
  - Body temperature increased [None]
  - Vision blurred [None]
  - Vitreous floaters [None]
  - Hypersensitivity [None]
  - Rash [None]
  - Erythema [None]
  - Decreased appetite [None]
  - Anxiety [None]
  - Headache [None]
  - Insomnia [None]
  - Chills [None]
  - Feeling abnormal [None]
  - Mobility decreased [None]
  - Pain [None]
  - Nausea [None]
  - Dysgeusia [None]
  - Dizziness [None]
  - Balance disorder [None]
  - Asthenia [None]
  - Alopecia [None]

NARRATIVE: CASE EVENT DATE: 20170201
